FAERS Safety Report 7990684-3 (Version None)
Quarter: 2011Q4

REPORT INFORMATION
  Report Type: 
  Country: None (occurrence: None)
  Receive Date: 20111219
  Receipt Date: 20111212
  Transmission Date: 20120403
  Serious: Yes (Other)
  Sender: FDA-Public Use
  Company Number: US-B.I. PHARMACEUTICALS,INC./RIDGEFIELD-2011-EU-01060GD

PATIENT
  Age: 6 Year
  Sex: Female

DRUGS (3)
  1. HEPARIN [Suspect]
     Indication: ANTICOAGULANT THERAPY
     Dosage: ADJUSTED TO MAINTAIN A NORMOCOAGULABLE THROMBOELASTOGRAPHY
  2. ASPIRIN [Suspect]
     Indication: ANTIPLATELET THERAPY
     Dosage: 2-10 MG/KG/MIN
  3. DIPYRIDAMOLE [Suspect]
     Indication: ANTIPLATELET THERAPY
     Dosage: 200 MG

REACTIONS (2)
  - CEREBROVASCULAR ACCIDENT [None]
  - MUSCULAR WEAKNESS [None]
